FAERS Safety Report 7057218-1 (Version None)
Quarter: 2010Q4

REPORT INFORMATION
  Report Type: 
  Country: None (occurrence: None)
  Receive Date: 20101022
  Receipt Date: 20101013
  Transmission Date: 20110411
  Serious: Yes (Hospitalization, Other)
  Sender: FDA-Public Use
  Company Number: US-US-EMD SERONO, INC.-230215M09USA

PATIENT
  Sex: Female
  Weight: 101 kg

DRUGS (3)
  1. REBIF [Suspect]
     Indication: MULTIPLE SCLEROSIS
     Route: 058
     Dates: start: 20090330, end: 20090401
  2. REBIF [Suspect]
     Route: 058
     Dates: start: 20100202
  3. UNSPECIFIED MEDICATION [Concomitant]
     Indication: PREMEDICATION

REACTIONS (9)
  - AMNIORRHOEA [None]
  - DRUG EXPOSURE DURING PREGNANCY [None]
  - IMMUNE SYSTEM DISORDER [None]
  - NASOPHARYNGITIS [None]
  - NAUSEA [None]
  - NORMAL NEWBORN [None]
  - PNEUMONIA [None]
  - PULMONARY EMBOLISM [None]
  - VOMITING [None]
